FAERS Safety Report 12156345 (Version 2)
Quarter: 2016Q3

REPORT INFORMATION
  Report Type: Spontaneous
  Country: JP (occurrence: JP)
  Receive Date: 20160307
  Receipt Date: 20160711
  Transmission Date: 20161109
  Serious: Yes (Other)
  Sender: FDA-Public Use
  Company Number: JP-ELI_LILLY_AND_COMPANY-JP201602009266

PATIENT
  Age: 66 Year
  Sex: Male
  Weight: 54.5 kg

DRUGS (6)
  1. CYRAMZA [Suspect]
     Active Substance: RAMUCIRUMAB
     Indication: GASTRIC CANCER RECURRENT
     Dosage: UNK
     Route: 042
     Dates: start: 201508
  2. RACOL [Concomitant]
     Active Substance: AMINO ACIDS\DEXTROSE\ELECTROLYTES NOS
  3. PACLITAXEL. [Suspect]
     Active Substance: PACLITAXEL
     Indication: GASTRIC CANCER RECURRENT
     Dosage: UNK
     Route: 042
     Dates: start: 201508
  4. TAKEPRON [Concomitant]
     Active Substance: LANSOPRAZOLE
  5. ELENTAL [Concomitant]
     Active Substance: AMINO ACIDS\CARBOHYDRATES\MINERALS\SOYBEAN OIL\VITAMINS
  6. LIXIANA [Concomitant]
     Active Substance: EDOXABAN TOSILATE MONOHYDRATE
     Indication: VENOUS THROMBOSIS LIMB
     Route: 048

REACTIONS (3)
  - Deep vein thrombosis [Unknown]
  - Proteinuria [Unknown]
  - Fatigue [Unknown]

NARRATIVE: CASE EVENT DATE: 20150925
